FAERS Safety Report 7395094-8 (Version None)
Quarter: 2011Q2

REPORT INFORMATION
  Report Type: 
  Country: None (occurrence: None)
  Receive Date: 20110405
  Receipt Date: 20110329
  Transmission Date: 20111010
  Serious: Yes (Death, Hospitalization)
  Sender: FDA-Public Use
  Company Number: FR-PFIZER INC-2011025497

PATIENT
  Age: 72 Year
  Sex: Female

DRUGS (7)
  1. SUTENT [Suspect]
     Dosage: 25 MG, 1X/DAY
     Route: 048
     Dates: start: 20101001, end: 20110130
  2. TARDYFERON [Concomitant]
  3. SUTENT [Suspect]
     Indication: RENAL CANCER METASTATIC
     Dosage: 50 MG, 1X/DAY
     Route: 048
     Dates: start: 20100920
  4. LEVOTHYROX [Concomitant]
  5. ASPEGIC 325 [Concomitant]
  6. LEXOMIL [Concomitant]
  7. SUTENT [Suspect]
     Dosage: 37.5 MG, 1X/DAY
     Route: 048

REACTIONS (9)
  - RENAL CANCER METASTATIC [None]
  - RENAL FAILURE ACUTE [None]
  - GENERALISED OEDEMA [None]
  - NEPHROTIC SYNDROME [None]
  - CARDIAC FAILURE [None]
  - ACUTE PULMONARY OEDEMA [None]
  - PLEURAL EFFUSION [None]
  - DISEASE PROGRESSION [None]
  - RESPIRATORY DISTRESS [None]
